FAERS Safety Report 21946544 (Version 1)
Quarter: 2023Q1

REPORT INFORMATION
  Report Type: Report from Study
  Country: DE (occurrence: DE)
  Receive Date: 20230202
  Receipt Date: 20230202
  Transmission Date: 20230417
  Serious: Yes (Other)
  Sender: FDA-Public Use
  Company Number: DE-AMGEN-DEUNI2023016138

PATIENT
  Age: 49 Year
  Sex: Female

DRUGS (4)
  1. TRASTUZUMAB [Suspect]
     Active Substance: TRASTUZUMAB
     Indication: Breast cancer
     Dosage: 510 MILLIGRAM, DATE OF LAST APPLICATION PRIOR EVENT: 27/OCT/2022, DOSE PRIOR EVENT: 498 MG
     Route: 065
     Dates: start: 20220804
  2. PERTUZUMAB [Suspect]
     Active Substance: PERTUZUMAB
     Indication: Breast cancer
     Dosage: 420 MILLIGRAM, DATE OF LAST APPLICATION PRIOR EVENT: 27/OCT/2022, LAST DOSE PRIOR EVENT: 420 MG
     Route: 065
     Dates: start: 20220804
  3. PACLITAXEL [Suspect]
     Active Substance: PACLITAXEL
     Indication: Breast cancer
     Dosage: 162 MILLIGRAM, DATE OF LAST APPLICATION PRIOR EVENT: 27/OCT/2022, LAST DOSE PRIOR EVENT: 159.2 MG
     Route: 065
     Dates: start: 20220714
  4. CARBOPLATIN [Suspect]
     Active Substance: CARBOPLATIN
     Indication: Breast cancer
     Dosage: 570 MILLIGRAM, DATE OF LAST APPLICATION PRIOR EVENT: 27/OCT/2022, LAST DOSE PRIOR EVENT: 603 MG
     Route: 065
     Dates: start: 20220714

REACTIONS (1)
  - Polyneuropathy [Not Recovered/Not Resolved]

NARRATIVE: CASE EVENT DATE: 20221101
